FAERS Safety Report 4970989-0 (Version None)
Quarter: 2006Q2

REPORT INFORMATION
  Report Type: 
  Country: None (occurrence: None)
  Receive Date: 20060412
  Receipt Date: 20060404
  Transmission Date: 20061013
  Serious: Yes (Hospitalization, Other)
  Sender: FDA-Public Use
  Company Number: US-GILEAD-2006-0009433

PATIENT
  Age: 55 Year
  Sex: Female

DRUGS (2)
  1. TRUVADA [Suspect]
     Indication: HIV INFECTION
     Dates: start: 20050801
  2. EFAVIRENZ [Concomitant]
     Indication: HIV INFECTION
     Dates: start: 20050801

REACTIONS (4)
  - COMA [None]
  - HAEMODIALYSIS [None]
  - HAEMORRHAGE INTRACRANIAL [None]
  - RENAL FAILURE [None]
